FAERS Safety Report 20455472 (Version 3)
Quarter: 2023Q1

REPORT INFORMATION
  Report Type: Report from Study
  Country: US (occurrence: US)
  Receive Date: 20220210
  Receipt Date: 20230120
  Transmission Date: 20230417
  Serious: No
  Sender: FDA-Public Use
  Company Number: US-KYOWAKIRIN-2022BKK001273

PATIENT

DRUGS (6)
  1. CRYSVITA [Suspect]
     Active Substance: BUROSUMAB-TWZA
     Indication: Hereditary hypophosphataemic rickets
     Dosage: 15 MG, EVERY 14 DAYS
     Route: 058
  2. CRYSVITA [Suspect]
     Active Substance: BUROSUMAB-TWZA
     Dosage: 20 MG, EVERY 14 DAYS (2 WEEKS)
     Route: 058
  3. CRYSVITA [Suspect]
     Active Substance: BUROSUMAB-TWZA
     Dosage: 20 MG, 1X/2 WEEKS
     Route: 058
  4. CRYSVITA [Suspect]
     Active Substance: BUROSUMAB-TWZA
     Dosage: UNK
     Route: 065
     Dates: start: 202107
  5. CRYSVITA [Suspect]
     Active Substance: BUROSUMAB-TWZA
     Dosage: 20 MG, (R UPPER THIGH)
     Route: 058
     Dates: start: 20221228
  6. VITAMIN D3 [Concomitant]
     Active Substance: CHOLECALCIFEROL
     Indication: Product used for unknown indication
     Dosage: UNK
     Route: 065
     Dates: end: 202210

REACTIONS (10)
  - Blood phosphorus decreased [Unknown]
  - Pyrexia [Recovered/Resolved]
  - Cough [Unknown]
  - Arthralgia [Recovered/Resolved]
  - Rash pruritic [Recovered/Resolved]
  - Initial insomnia [Recovered/Resolved]
  - Crying [Recovered/Resolved]
  - Incorrect dose administered [Recovered/Resolved]
  - Product quality issue [Recovered/Resolved]
  - Orthopaedic procedure [Unknown]

NARRATIVE: CASE EVENT DATE: 20210701
